FAERS Safety Report 7158328-0 (Version None)
Quarter: 2010Q4

REPORT INFORMATION
  Report Type: 
  Country: None (occurrence: None)
  Receive Date: 20101214
  Receipt Date: 20100121
  Transmission Date: 20110411
  Serious: No
  Sender: FDA-Public Use
  Company Number: US-PFIZER INC-2010009440

PATIENT
  Sex: Female

DRUGS (2)
  1. ARTHROTEC [Suspect]
     Indication: PAIN
     Dosage: 75 MG, UNK
     Route: 048
     Dates: start: 20100118, end: 20100118
  2. DICLOFENAC [Concomitant]
     Indication: PAIN
     Dosage: FREQUENCY: AS NEEDED,
     Route: 048

REACTIONS (2)
  - NAUSEA [None]
  - VOMITING [None]
